FAERS Safety Report 17109801 (Version 1)
Quarter: 2019Q4

REPORT INFORMATION
  Report Type: Other
  Country: US (occurrence: US)
  Receive Date: 20191204
  Receipt Date: 20191204
  Transmission Date: 20200122
  Serious: No
  Sender: FDA-Public Use
  Company Number: US-APOTEX-2019AP014658

PATIENT

DRUGS (1)
  1. FENTANYL. [Suspect]
     Active Substance: FENTANYL
     Indication: PRODUCT USED FOR UNKNOWN INDICATION
     Dosage: UNK
     Route: 065

REACTIONS (21)
  - Herpes zoster [Unknown]
  - Throat irritation [Recovering/Resolving]
  - Nausea [Recovering/Resolving]
  - Urinary tract infection [Unknown]
  - Wrong technique in product usage process [Unknown]
  - Condition aggravated [Recovering/Resolving]
  - Nervousness [Recovering/Resolving]
  - Dyskinesia [Recovering/Resolving]
  - Thinking abnormal [Recovering/Resolving]
  - Gastrointestinal disorder [Recovering/Resolving]
  - Reflux gastritis [Recovering/Resolving]
  - Dysgeusia [Recovering/Resolving]
  - Oral discomfort [Recovering/Resolving]
  - Drug ineffective [Unknown]
  - Hyperhidrosis [Recovering/Resolving]
  - Product adhesion issue [Unknown]
  - Tinnitus [Recovering/Resolving]
  - Product substitution issue [Unknown]
  - Product quality issue [Unknown]
  - Fatigue [Recovering/Resolving]
  - Malaise [Unknown]
